FAERS Safety Report 18233016 (Version 1)
Quarter: 2020Q3

REPORT INFORMATION
  Report Type: Report from Study
  Country: None (occurrence: US)
  Receive Date: 20200904
  Receipt Date: 20200904
  Transmission Date: 20201103
  Serious: Yes (Hospitalization, Other)
  Sender: FDA-Public Use
  Company Number: US-ABBVIE-20K-163-3434294-00

PATIENT
  Age: 56 Year
  Sex: Female

DRUGS (2)
  1. HUMIRA [Suspect]
     Active Substance: ADALIMUMAB
     Dosage: CITRATE FREE
     Route: 058
  2. HUMIRA [Suspect]
     Active Substance: ADALIMUMAB
     Indication: CROHN^S DISEASE
     Dosage: CITRATE FREE
     Route: 058

REACTIONS (7)
  - Blood cholesterol abnormal [Unknown]
  - Fall [Unknown]
  - Emotional disorder [Not Recovered/Not Resolved]
  - Psoriasis [Unknown]
  - Fistula [Unknown]
  - Joint injury [Unknown]
  - Buttock injury [Unknown]

NARRATIVE: CASE EVENT DATE: 202008
